FAERS Safety Report 13352296 (Version 1)
Quarter: 2017Q1

REPORT INFORMATION
  Report Type: Spontaneous
  Country: US (occurrence: US)
  Receive Date: 20170320
  Receipt Date: 20170320
  Transmission Date: 20170429
  Serious: No
  Sender: FDA-Public Use
  Company Number: US-SA-2016SA219525

PATIENT
  Age: 82 Year
  Sex: Female
  Weight: 49.89 kg

DRUGS (2)
  1. FLUTICASONE PROPIONATE. [Concomitant]
     Active Substance: FLUTICASONE PROPIONATE
     Route: 065
  2. NASACORT [Suspect]
     Active Substance: TRIAMCINOLONE ACETONIDE
     Indication: DYSPHONIA
     Dosage: 2 TIMES INTO EACH NOSTRIL
     Route: 065
     Dates: start: 20160311, end: 20160511

REACTIONS (2)
  - Therapeutic response decreased [Unknown]
  - Product container issue [Unknown]
